FAERS Safety Report 7228954-9 (Version None)
Quarter: 2011Q1

REPORT INFORMATION
  Report Type: 
  Country: None (occurrence: None)
  Receive Date: 20110117
  Receipt Date: 20110113
  Transmission Date: 20110831
  Serious: Yes (Death)
  Sender: FDA-Public Use
  Company Number: JP-SANOFI-AVENTIS-2011SA002421

PATIENT

DRUGS (2)
  1. TAXOTERE [Suspect]
     Route: 041
  2. ITRACONAZOLE [Concomitant]

REACTIONS (1)
  - DEATH [None]
